FAERS Safety Report 21768209 (Version 2)
Quarter: 2023Q1

REPORT INFORMATION
  Report Type: Report from Study
  Country: IT (occurrence: IT)
  Receive Date: 20221222
  Receipt Date: 20230102
  Transmission Date: 20230418
  Serious: Yes (Other)
  Sender: FDA-Public Use
  Company Number: IT-TEVA-2022-IT-2838355

PATIENT

DRUGS (4)
  1. DOCETAXEL [Suspect]
     Active Substance: DOCETAXEL
     Indication: Gastric cancer
     Dosage: FOUR TIMES PRIOR TO SURGERY AS PART OF FLOT REGIMEN
     Route: 065
  2. OXALIPLATIN [Suspect]
     Active Substance: OXALIPLATIN
     Indication: Gastric cancer
     Dosage: FOUR TIMES PRIOR TO SURGERY AS PART OF FLOT REGIMEN
     Route: 065
  3. FLUOROURACIL [Suspect]
     Active Substance: FLUOROURACIL
     Indication: Gastric cancer
     Dosage: FOUR TIMES PRIOR TO SURGERY AS PART OF FLOT REGIMEN
     Route: 065
  4. LEUCOVORIN [Suspect]
     Active Substance: LEUCOVORIN
     Indication: Gastric cancer
     Dosage: FOUR TIMES PRIOR TO SURGERY AS PART OF FLOT REGIMEN
     Route: 065

REACTIONS (1)
  - Acute kidney injury [Unknown]
